FAERS Safety Report 8365176-2 (Version None)
Quarter: 2012Q2

REPORT INFORMATION
  Report Type: 
  Country: None (occurrence: None)
  Receive Date: 20120516
  Receipt Date: 20120507
  Transmission Date: 20120825
  Serious: Yes (Hospitalization)
  Sender: FDA-Public Use
  Company Number: US-ASTRAZENECA-2012SE29249

PATIENT
  Sex: Female

DRUGS (3)
  1. KEPPRA [Concomitant]
  2. SEROQUEL XR [Suspect]
     Route: 048
  3. LAMICTAL [Suspect]
     Indication: BIPOLAR DISORDER
     Route: 048
     Dates: start: 20090101

REACTIONS (2)
  - ACCIDENTAL OVERDOSE [None]
  - RASH [None]
